FAERS Safety Report 8415649-9 (Version None)
Quarter: 2012Q2

REPORT INFORMATION
  Report Type: 
  Country: None (occurrence: None)
  Receive Date: 20120606
  Receipt Date: 20120530
  Transmission Date: 20120825
  Serious: Yes (Hospitalization, Other)
  Sender: FDA-Public Use
  Company Number: PHFR2012GB003155

PATIENT
  Sex: Female

DRUGS (1)
  1. CLOZARIL [Suspect]
     Indication: SCHIZOPHRENIA
     Dosage: 12.5 MG
     Route: 048
     Dates: start: 20120524

REACTIONS (7)
  - BLOOD PRESSURE DECREASED [None]
  - HYPERHIDROSIS [None]
  - HEART RATE INCREASED [None]
  - DYSSTASIA [None]
  - ORTHOSTATIC HYPOTENSION [None]
  - ELECTROCARDIOGRAM ABNORMAL [None]
  - DIZZINESS [None]
